FAERS Safety Report 6663538-2 (Version None)
Quarter: 2010Q2

REPORT INFORMATION
  Report Type: 
  Country: None (occurrence: None)
  Receive Date: 20100401
  Receipt Date: 20100322
  Transmission Date: 20101027
  Serious: Yes (Hospitalization, Other)
  Sender: FDA-Public Use
  Company Number: US-PFIZER INC-2010037265

PATIENT
  Sex: Male
  Weight: 79.365 kg

DRUGS (7)
  1. SUTENT [Suspect]
     Indication: METASTASES TO CHEST WALL
     Dosage: 25 MG, DAILY
     Route: 048
     Dates: start: 20090101, end: 20100101
  2. ACETYLSALICYLIC ACID [Concomitant]
     Dosage: UNK
  3. VERAPAMIL [Concomitant]
     Dosage: 20 MG, UNK
  4. METOPROLOL [Concomitant]
     Dosage: 25 MG, UNK
  5. ALLOPURINOL [Concomitant]
     Dosage: 100 MG, UNK
  6. PRAVASTATIN [Concomitant]
     Dosage: 40 MG, UNK
  7. HYDROCHLOROTHIAZIDE [Concomitant]
     Dosage: 25 MG, UNK

REACTIONS (2)
  - PNEUMONIA [None]
  - WHITE BLOOD CELL COUNT DECREASED [None]
